FAERS Safety Report 16708068 (Version 18)
Quarter: 2020Q1

REPORT INFORMATION
  Report Type: Report from Study
  Country: US (occurrence: US)
  Receive Date: 20190815
  Receipt Date: 20200320
  Transmission Date: 20200409
  Serious: Yes (Life-Threatening, Hospitalization)
  Sender: FDA-Public Use
  Company Number: US-EISAI MEDICAL RESEARCH-EC-2019-060754

PATIENT
  Age: 67 Year
  Sex: Male
  Weight: 88.6 kg

DRUGS (15)
  1. LENVATINIB [Suspect]
     Active Substance: LENVATINIB
     Indication: MALIGNANT MELANOMA STAGE III
     Route: 048
     Dates: start: 20190627, end: 20190731
  2. PRIMIDONE. [Concomitant]
     Active Substance: PRIMIDONE
     Dates: start: 20170426
  3. IBUPROFEN. [Concomitant]
     Active Substance: IBUPROFEN
     Dates: start: 20190621
  4. GLYCOLAX [Concomitant]
     Active Substance: POLYETHYLENE GLYCOL 3350
     Dates: start: 20190712, end: 20190808
  5. SENNA [Concomitant]
     Active Substance: SENNA LEAF\SENNOSIDES\SENNOSIDES A AND B
     Dates: start: 20190712
  6. LENVATINIB [Suspect]
     Active Substance: LENVATINIB
     Indication: MALIGNANT MELANOMA STAGE IV
  7. PEMBROLIZUMAB. [Suspect]
     Active Substance: PEMBROLIZUMAB
     Indication: MALIGNANT MELANOMA STAGE IV
     Route: 041
     Dates: start: 20190718, end: 20190718
  8. OXYCODONE [Concomitant]
     Active Substance: OXYCODONE
     Dates: start: 20190418
  9. PEPCID [Concomitant]
     Active Substance: FAMOTIDINE
     Dates: start: 20190801, end: 20190801
  10. PEMBROLIZUMAB. [Suspect]
     Active Substance: PEMBROLIZUMAB
     Indication: MALIGNANT MELANOMA STAGE III
     Route: 041
     Dates: start: 20190627, end: 20190627
  11. ZANTAC [Concomitant]
     Active Substance: RANITIDINE HYDROCHLORIDE
     Dates: start: 20190712
  12. NAPROXEN SODIUM. [Concomitant]
     Active Substance: NAPROXEN SODIUM
     Dates: start: 20190412, end: 20190731
  13. ACETAMINOPHEN (+) OCXYCODONE HYDROCHLORIDE [Concomitant]
     Dates: start: 20190507, end: 20191004
  14. ACETAMINOPHEN. [Concomitant]
     Active Substance: ACETAMINOPHEN
     Dates: start: 20190711
  15. TRAMADOL HYDROCHLORIDE. [Concomitant]
     Active Substance: TRAMADOL HYDROCHLORIDE
     Dates: start: 20190712, end: 20191004

REACTIONS (1)
  - Febrile neutropenia [Recovered/Resolved]

NARRATIVE: CASE EVENT DATE: 20190801
